FAERS Safety Report 15877772 (Version 3)
Quarter: 2019Q1

REPORT INFORMATION
  Report Type: Spontaneous
  Country: BR (occurrence: BR)
  Receive Date: 20190128
  Receipt Date: 20190220
  Transmission Date: 20190417
  Serious: Yes (Other)
  Sender: FDA-Public Use
  Company Number: BR-AMGEN-BRASP2018070619

PATIENT
  Age: 55 Year
  Sex: Female

DRUGS (2)
  1. ENBREL [Suspect]
     Active Substance: ETANERCEPT
     Dosage: UNK
     Route: 065
     Dates: start: 201805
  2. ENBREL [Suspect]
     Active Substance: ETANERCEPT
     Indication: RHEUMATOID ARTHRITIS
     Dosage: 50 MG, ONCE WEEKLY
     Route: 065
     Dates: start: 20180524

REACTIONS (14)
  - Malaise [Recovered/Resolved]
  - Pain [Unknown]
  - Aphonia [Unknown]
  - Influenza [Unknown]
  - Osteoarthritis [Not Recovered/Not Resolved]
  - Sinusitis [Unknown]
  - Drug ineffective [Unknown]
  - Pharyngitis [Unknown]
  - Hypoacusis [Unknown]
  - Spinal disorder [Unknown]
  - Tremor [Unknown]
  - Heart rate increased [Recovered/Resolved]
  - Pyrexia [Recovered/Resolved]
  - Disease recurrence [Unknown]

NARRATIVE: CASE EVENT DATE: 2018
